FAERS Safety Report 10220500 (Version 3)
Quarter: 2014Q2

REPORT INFORMATION
  Report Type: Report from Study
  Country: DE (occurrence: DE)
  Receive Date: 20140606
  Receipt Date: 20140630
  Transmission Date: 20141212
  Serious: Yes (Hospitalization)
  Sender: FDA-Public Use
  Company Number: DE-ROCHE-1405185

PATIENT
  Sex: Female

DRUGS (5)
  1. LUCENTIS [Suspect]
     Indication: AGE-RELATED MACULAR DEGENERATION
     Route: 050
     Dates: start: 20120927, end: 201305
  2. LUCENTIS [Suspect]
     Indication: SUBRETINAL FLUID
     Route: 050
     Dates: start: 20121122
  3. LUCENTIS [Suspect]
     Indication: CHOROIDAL NEOVASCULARISATION
     Route: 050
     Dates: start: 201305, end: 201305
  4. FALITHROM [Suspect]
     Indication: PRODUCT USED FOR UNKNOWN INDICATION
     Route: 065
  5. LUTEIN PLUS [Concomitant]
     Route: 065
     Dates: start: 20090910

REACTIONS (2)
  - Thrombosis [Recovering/Resolving]
  - Visual acuity reduced [Not Recovered/Not Resolved]
